FAERS Safety Report 26065311 (Version 2)
Quarter: 2025Q4

REPORT INFORMATION
  Report Type: Spontaneous
  Country: US (occurrence: US)
  Receive Date: 20251119
  Receipt Date: 20251201
  Transmission Date: 20260117
  Serious: Yes (Hospitalization, Other)
  Sender: BIOMARIN
  Company Number: US-SA-2025SA329455

PATIENT
  Age: 7 Week
  Sex: Male

DRUGS (1)
  1. LARONIDASE [Suspect]
     Active Substance: LARONIDASE
     Indication: Mucopolysaccharidosis I
     Dosage: 2.9 MILLIGRAM, QW
     Dates: start: 202510

REACTIONS (4)
  - Cardiac failure [Unknown]
  - Dysphagia [Not Recovered/Not Resolved]
  - Weight increased [Unknown]
  - Product preparation issue [Unknown]

NARRATIVE: CASE EVENT DATE: 20250101
